FAERS Safety Report 7672660-3 (Version None)
Quarter: 2011Q3

REPORT INFORMATION
  Report Type: 
  Country: None (occurrence: None)
  Receive Date: 20110809
  Receipt Date: 20110803
  Transmission Date: 20111222
  Serious: Yes (Other)
  Sender: FDA-Public Use
  Company Number: US-B.I. PHARMACEUTICALS,INC./RIDGEFIELD-2011-BP-19081BP

PATIENT
  Age: 54 Year
  Sex: Female

DRUGS (4)
  1. LYRICA [Suspect]
     Indication: PAIN
  2. LYRICA [Suspect]
     Indication: FIBROMYALGIA
     Route: 065
  3. MOBIC [Suspect]
     Indication: FIBROMYALGIA
     Route: 065
  4. MOBIC [Suspect]
     Indication: PAIN

REACTIONS (1)
  - DRUG HYPERSENSITIVITY [None]
